FAERS Safety Report 8176836-0 (Version None)
Quarter: 2012Q1

REPORT INFORMATION
  Report Type: 
  Country: None (occurrence: None)
  Receive Date: 20120301
  Receipt Date: 20111213
  Transmission Date: 20120608
  Serious: Yes (Other)
  Sender: FDA-Public Use
  Company Number: CA-JNJFOC-20120111778

PATIENT
  Sex: Female
  Weight: 111 kg

DRUGS (3)
  1. REMICADE [Suspect]
     Dosage: 21ST INFUSION
     Route: 042
     Dates: start: 20111213
  2. PURINETHOL [Concomitant]
     Route: 065
  3. REMICADE [Suspect]
     Indication: PRODUCT USED FOR UNKNOWN INDICATION
     Route: 042

REACTIONS (2)
  - HEADACHE [None]
  - HEAD INJURY [None]
